FAERS Safety Report 9439592 (Version 3)
Quarter: 2013Q3

REPORT INFORMATION
  Report Type: Spontaneous
  Country: DE (occurrence: DE)
  Receive Date: 20130805
  Receipt Date: 20130823
  Transmission Date: 20140515
  Serious: Yes (Death)
  Sender: FDA-Public Use
  Company Number: DE-009507513-1307DEU017413

PATIENT
  Age: 58 Year
  Sex: Male
  Weight: 72 kg

DRUGS (3)
  1. VICTRELIS [Suspect]
     Indication: HEPATITIS C
     Dosage: DAILY DOSE: 2400 MG
     Route: 048
     Dates: start: 20130223, end: 20130727
  2. PEGINTRON [Suspect]
     Indication: HEPATITIS C
     Dosage: UNK, QW
     Route: 058
     Dates: start: 20130222, end: 20130727
  3. REBETOL [Suspect]
     Indication: HEPATITIS C
     Dosage: DAILY DOSE: 1000 MG
     Dates: start: 20130222, end: 20130727

REACTIONS (3)
  - Sudden cardiac death [Fatal]
  - Arrhythmia [Fatal]
  - Blood urea increased [Unknown]
